FAERS Safety Report 7216974-X (Version None)
Quarter: 2011Q1

REPORT INFORMATION
  Report Type: 
  Country: None (occurrence: None)
  Receive Date: 20110110
  Receipt Date: 20110104
  Transmission Date: 20110831
  Serious: Yes (Death, Hospitalization, Other)
  Sender: FDA-Public Use
  Company Number: US-ASTELLAS-2010US005052

PATIENT

DRUGS (6)
  1. BACTRIM [Concomitant]
     Indication: PRODUCT USED FOR UNKNOWN INDICATION
     Dosage: UNK
     Route: 065
  2. PRAVACHOL [Concomitant]
     Indication: PRODUCT USED FOR UNKNOWN INDICATION
     Dosage: UNK
     Route: 065
  3. PROGRAF [Suspect]
     Indication: HEART TRANSPLANT
     Dosage: 1 MG, BID
     Route: 048
     Dates: start: 19971127, end: 20101104
  4. LASIX [Concomitant]
     Indication: PRODUCT USED FOR UNKNOWN INDICATION
     Dosage: UNK
     Route: 065
  5. ASPIRIN [Concomitant]
     Indication: PRODUCT USED FOR UNKNOWN INDICATION
     Dosage: UNK
     Route: 065
  6. COREG [Concomitant]
     Indication: PRODUCT USED FOR UNKNOWN INDICATION
     Dosage: UNK
     Route: 065

REACTIONS (6)
  - LEFT VENTRICULAR DYSFUNCTION [None]
  - CARDIAC FAILURE [None]
  - CARDIAC ARREST [None]
  - TREATMENT NONCOMPLIANCE [None]
  - DEEP VEIN THROMBOSIS [None]
  - HEART TRANSPLANT REJECTION [None]
